FAERS Safety Report 14845937 (Version 1)
Quarter: 2018Q2

REPORT INFORMATION
  Report Type: Spontaneous
  Country: FR (occurrence: FR)
  Receive Date: 20180504
  Receipt Date: 20180504
  Transmission Date: 20180711
  Serious: Yes (Hospitalization, Other)
  Sender: FDA-Public Use
  Company Number: FR-MERCK KGAA-2047174

PATIENT
  Age: 67 Year
  Sex: Female

DRUGS (1)
  1. NOVOTHYROX [Suspect]
     Active Substance: LEVOTHYROXINE SODIUM
     Indication: PRODUCT USED FOR UNKNOWN INDICATION

REACTIONS (16)
  - Tooth abscess [None]
  - Hyperthyroidism [None]
  - Panic attack [None]
  - Fatigue [None]
  - Disturbance in attention [None]
  - Blood pressure increased [None]
  - Alopecia [None]
  - Nausea [None]
  - Insomnia [None]
  - Arthralgia [None]
  - Headache [None]
  - Ill-defined disorder [None]
  - Dizziness [None]
  - Aggression [None]
  - Loss of personal independence in daily activities [None]
  - Blood thyroid stimulating hormone decreased [None]

NARRATIVE: CASE EVENT DATE: 20170807
